FAERS Safety Report 22529159 (Version 1)
Quarter: 2023Q2

REPORT INFORMATION
  Report Type: Spontaneous
  Country: US (occurrence: US)
  Receive Date: 20230607
  Receipt Date: 20230607
  Transmission Date: 20230722
  Serious: Yes (Other)
  Sender: FDA-Public Use
  Company Number: US-STRIDES ARCOLAB LIMITED-2023SP008709

PATIENT

DRUGS (4)
  1. RANITIDINE [Suspect]
     Active Substance: RANITIDINE
     Indication: Product used for unknown indication
     Dosage: UNK, RANITIDINE (ZANTAC) PRESCRIPTION
     Route: 065
     Dates: start: 2013, end: 2013
  2. RANITIDINE [Suspect]
     Active Substance: RANITIDINE
     Dosage: UNK, RANITIDINE, PRESCRIPTION
     Route: 065
     Dates: start: 2013, end: 2013
  3. RANITIDINE [Suspect]
     Active Substance: RANITIDINE
     Dosage: UNK, RANITIDINE (ZANTAC) OVER THE COUNTER
     Route: 065
     Dates: start: 2013, end: 2013
  4. RANITIDINE [Suspect]
     Active Substance: RANITIDINE
     Dosage: UNK, RANITIDINE, OVER THE COUNTER
     Route: 065
     Dates: start: 2013, end: 2013

REACTIONS (1)
  - Gastric cancer [Unknown]

NARRATIVE: CASE EVENT DATE: 20130901
